FAERS Safety Report 9906647 (Version 2)
Quarter: 2014Q1

REPORT INFORMATION
  Report Type: Report from Study
  Country: US (occurrence: US)
  Receive Date: 20140218
  Receipt Date: 20140228
  Transmission Date: 20141002
  Serious: Yes (Hospitalization)
  Sender: FDA-Public Use
  Company Number: US-ABBVIE-14P-163-1200305-00

PATIENT
  Age: 63 Year
  Sex: Female
  Weight: 81.72 kg

DRUGS (8)
  1. HUMIRA [Suspect]
     Indication: PSORIASIS
     Route: 058
     Dates: start: 201302, end: 201303
  2. HUMIRA [Suspect]
     Dosage: ONE TIME DOSE
     Dates: start: 20140202, end: 20140202
  3. HUMIRA [Suspect]
     Route: 058
     Dates: start: 20140209
  4. ENTECAVIR [Suspect]
     Indication: HEPATITIS B
     Dates: end: 201308
  5. BARACLUDE [Concomitant]
     Indication: LIVER DISORDER
     Dates: start: 201312
  6. BARACLUDE [Concomitant]
     Indication: PROPHYLAXIS
  7. SIMVASTATIN [Concomitant]
     Indication: BLOOD CHOLESTEROL INCREASED
  8. SIMVASTATIN [Concomitant]
     Indication: PROPHYLAXIS

REACTIONS (6)
  - Retching [Recovered/Resolved]
  - Diarrhoea [Recovered/Resolved]
  - Influenza [Recovered/Resolved]
  - Vomiting [Unknown]
  - Nausea [Unknown]
  - Gastritis [Unknown]
